FAERS Safety Report 25250465 (Version 1)
Quarter: 2025Q2

REPORT INFORMATION
  Report Type: Spontaneous
  Country: US (occurrence: US)
  Receive Date: 20250429
  Receipt Date: 20250429
  Transmission Date: 20250716
  Serious: No
  Sender: ABBVIE
  Company Number: US-ABBVIE-6239950

PATIENT
  Age: 56 Year
  Sex: Female

DRUGS (29)
  1. LINACLOTIDE [Suspect]
     Active Substance: LINACLOTIDE
     Indication: Product used for unknown indication
     Dosage: DAILY DOSE: 145 MICROGRAM
     Route: 048
  2. ENBREL [Suspect]
     Active Substance: ETANERCEPT
     Indication: Rheumatoid arthritis
     Dosage: DAILY DOSE: 7.142 MILLIGRAM(S), 50 MILLIGRAM(S), 1 IN 1 WEEK
     Route: 065
  3. LIPITOR [Suspect]
     Active Substance: ATORVASTATIN CALCIUM
     Indication: Product used for unknown indication
     Dosage: DAILY DOSE: 80 MILLIGRAM(S)
     Route: 065
  4. ASPIRIN [Suspect]
     Active Substance: ASPIRIN
     Indication: Product used for unknown indication
     Dosage: DAILY DOSE: 81 MILLIGRAM(S)
     Route: 065
  5. RYTHMOL [Suspect]
     Active Substance: PROPAFENONE HYDROCHLORIDE
     Indication: Product used for unknown indication
     Dosage: DAILY DOSE: 225 MILLIGRAM(S)
     Route: 065
  6. GLUCOPHAGE [Suspect]
     Active Substance: METFORMIN HYDROCHLORIDE
     Indication: Product used for unknown indication
     Dosage: DAILY DOSE: 500 MILLIGRAM
     Route: 065
  7. PRILOSEC [Suspect]
     Active Substance: OMEPRAZOLE MAGNESIUM
     Indication: Product used for unknown indication
     Dosage: DAILY DOSE: 40 MILLIGRAM(S)
     Route: 065
  8. LIDOCAINE [Suspect]
     Active Substance: LIDOCAINE
     Indication: Product used for unknown indication
     Route: 065
  9. RIMEGEPANT [Suspect]
     Active Substance: RIMEGEPANT
     Indication: Product used for unknown indication
     Dosage: DAILY DOSE: 75 MILLIGRAM(S)
     Route: 065
  10. TOPAMAX [Suspect]
     Active Substance: TOPIRAMATE
     Indication: Product used for unknown indication
     Dosage: DAILY DOSE : 50 MILLIGRAM(S)
     Route: 065
  11. LEVETIRACETAM [Suspect]
     Active Substance: LEVETIRACETAM
     Indication: Product used for unknown indication
     Dosage: FORM STRENGTH: 100 MILLIGRAM PER MILLILITER?DAILY DOSE: 750 MILLIGRAM(S)
     Route: 065
  12. ZAVZPRET [Suspect]
     Active Substance: ZAVEGEPANT HYDROCHLORIDE
     Indication: Product used for unknown indication
     Dosage: DAILY DOSE: 10 MILLIGRAM(S)/ACTUATION
     Route: 065
  13. AZULFIDINE [Suspect]
     Active Substance: SULFASALAZINE
     Indication: Product used for unknown indication
     Dosage: DAILY DOSE: 500 MILLIGRAM(S)
     Route: 065
  14. METHOTREXATE SODIUM [Suspect]
     Active Substance: METHOTREXATE SODIUM
     Indication: Product used for unknown indication
     Dosage: DAILY DOSE: 25 MILLIGRAM(S)
     Route: 065
  15. FOLVITE [Suspect]
     Active Substance: FOLIC ACID
     Indication: Product used for unknown indication
     Dosage: DAILY DOSE: 1 MILLIGRAM(S)
     Route: 065
  16. TENORMIN [Suspect]
     Active Substance: ATENOLOL
     Indication: Product used for unknown indication
     Dosage: DAILY DOSE: 100 MILLIGRAM(S)
     Route: 065
  17. BOTOX [Suspect]
     Active Substance: ONABOTULINUMTOXINA
     Indication: Product used for unknown indication
     Route: 065
  18. METHYLPHENIDATE HYDROCHLORIDE [Suspect]
     Active Substance: METHYLPHENIDATE HYDROCHLORIDE
     Indication: Product used for unknown indication
     Dosage: FORM STRENGTH :  50 MILLIGRAM?DAILY DOSE : 36 MILLIGRAM(S)
     Route: 065
  19. ROBAXIN [Suspect]
     Active Substance: METHOCARBAMOL
     Indication: Product used for unknown indication
     Dosage: DAILY DOSE: 750 MILLIGRAM(S)
     Route: 065
  20. KLONOPIN [Suspect]
     Active Substance: CLONAZEPAM
     Indication: Product used for unknown indication
     Dosage: DAILY DOSE: 0.5 MILLIGRAM(S)
     Route: 065
  21. DELTASONE [Suspect]
     Active Substance: PREDNISONE
     Indication: Product used for unknown indication
     Dosage: DAILY DOSE: 21.5 MILLIGRAM(S)
     Route: 065
  22. VOLTAREN [Suspect]
     Active Substance: DICLOFENAC SODIUM
     Indication: Product used for unknown indication
     Dosage: DAILY DOSE: 22.1 PERCENT
     Route: 065
  23. VITAMIN D3 [Suspect]
     Active Substance: CHOLECALCIFEROL
     Indication: Product used for unknown indication
     Route: 065
  24. COLACE [Suspect]
     Active Substance: DOCUSATE SODIUM
     Indication: Product used for unknown indication
     Dosage: DAILY DOSE: 100 MILLIGRAM(S)
     Route: 065
  25. BENTYL WITH PHENOBARBITAL [Suspect]
     Active Substance: DICYCLOMINE HYDROCHLORIDE\PHENOBARBITAL
     Indication: Product used for unknown indication
     Dosage: DAILY DOSE: 10 MILLIGRAM(S)
     Route: 065
  26. LEVOMEFOLIC ACID\METHYLCOBALAMIN\TURMERIC [Suspect]
     Active Substance: LEVOMEFOLIC ACID\METHYLCOBALAMIN\TURMERIC
     Indication: Product used for unknown indication
     Dosage: DAILY DOSE: 500 MILLIGRAM(S)
     Route: 065
  27. LEVOMEFOLATE GLUCOSAMINE [Suspect]
     Active Substance: LEVOMEFOLATE GLUCOSAMINE
     Indication: Product used for unknown indication
     Dosage: DAILY DOSE: 500 MILLIGRAM(S)
     Route: 065
  28. DEPO-MEDROL [Suspect]
     Active Substance: METHYLPREDNISOLONE ACETATE
     Indication: Product used for unknown indication
     Dosage: DAILY DOSE: 40 MILLIGRAM(S)
     Route: 065
  29. GALANTAMINE [Suspect]
     Active Substance: GALANTAMINE
     Indication: Product used for unknown indication
     Dosage: FORM STRENGTH: 12 MILLIGRAM?DAILY DOSE : 24 MILLIGRAM(S)
     Route: 065

REACTIONS (23)
  - Angina pectoris [Unknown]
  - Thyroid atrophy [Unknown]
  - Haemorrhoids [Unknown]
  - Gastrooesophageal reflux disease [Unknown]
  - Malabsorption [Unknown]
  - Dysphagia [Unknown]
  - Vitamin B12 deficiency [Unknown]
  - Proctalgia [Unknown]
  - Fibromyalgia [Unknown]
  - Haemorrhage [Unknown]
  - Lymphadenopathy [Unknown]
  - Arthralgia [Unknown]
  - Hypertension [Unknown]
  - Myoclonus [Unknown]
  - Osteoporosis [Unknown]
  - Transient ischaemic attack [Unknown]
  - Rectal haemorrhage [Unknown]
  - Atrial fibrillation [Unknown]
  - Hypokalaemia [Unknown]
  - Hypothyroidism [Unknown]
  - Palpitations [Unknown]
  - Constipation [Unknown]
  - Diarrhoea [Unknown]
